FAERS Safety Report 7413005-3 (Version None)
Quarter: 2011Q2

REPORT INFORMATION
  Report Type: 
  Country: None (occurrence: None)
  Receive Date: 20110413
  Receipt Date: 20110404
  Transmission Date: 20111010
  Serious: Yes (Other)
  Sender: FDA-Public Use
  Company Number: PHHY2011US28263

PATIENT
  Age: 50 Year
  Sex: Female

DRUGS (3)
  1. QUETIAPINE [Suspect]
     Indication: SCHIZOPHRENIA
     Dosage: 800 MG/DAY
  2. SERTRALINE [Suspect]
     Indication: DEPRESSION
  3. QUETIAPINE [Suspect]
     Dosage: 900 MG/DAY

REACTIONS (3)
  - DELUSION [None]
  - SLEEP DISORDER [None]
  - SOMNAMBULISM [None]
